FAERS Safety Report 25462494 (Version 1)
Quarter: 2025Q2

REPORT INFORMATION
  Report Type: Spontaneous
  Country: FR (occurrence: FR)
  Receive Date: 20250620
  Receipt Date: 20250620
  Transmission Date: 20250716
  Serious: Yes (Hospitalization, Other)
  Sender: GLAXOSMITHKLINE
  Company Number: None

PATIENT
  Age: 31 Year
  Sex: Female
  Weight: 86 kg

DRUGS (8)
  1. FLUTICASONE FUROATE [Suspect]
     Active Substance: FLUTICASONE FUROATE
     Indication: Nasal polyps
     Dosage: 27.5 ?G, QD
  2. XOLAIR [Suspect]
     Active Substance: OMALIZUMAB
     Indication: Severe asthma with fungal sensitisation
     Dosage: 450 MG, Q3W
  3. TRANDATE [Suspect]
     Active Substance: LABETALOL HYDROCHLORIDE
     Indication: Hypertension
     Dosage: 400 MG, QD
  4. DESLORATADINE [Suspect]
     Active Substance: DESLORATADINE
     Indication: Rhinitis allergic
     Dosage: 5 MG, QD
  5. INNOVAIR [Suspect]
     Active Substance: BECLOMETHASONE DIPROPIONATE\FORMOTEROL
     Indication: Severe asthma with fungal sensitisation
     Dosage: UNK UNK, QD (2X2 INHALATIONS/DAY)
  6. GLYCOPYRROLATE [Suspect]
     Active Substance: GLYCOPYRROLATE
     Indication: Severe asthma with fungal sensitisation
     Dosage: 44 ?G, QD
  7. PHLOROGLUCINOL\1,3,5-TRIMETHOXYBENZENE [Suspect]
     Active Substance: PHLOROGLUCINOL\1,3,5-TRIMETHOXYBENZENE
     Indication: Uterine contractions during pregnancy
     Dosage: 2 DF, QD (2 TABLETS PER DAY)
  8. LACTULOSE [Suspect]
     Active Substance: LACTULOSE
     Indication: Constipation
     Dosage: 3 DF, QD (3 SACHETS/DAY)

REACTIONS (2)
  - Abortion spontaneous [Recovered/Resolved]
  - Exposure during pregnancy [Unknown]

NARRATIVE: CASE EVENT DATE: 20250404
